FAERS Safety Report 6719088-8 (Version None)
Quarter: 2010Q2

REPORT INFORMATION
  Report Type: 
  Country: None (occurrence: None)
  Receive Date: 20100511
  Receipt Date: 20100428
  Transmission Date: 20101027
  Serious: Yes (Death, Other)
  Sender: FDA-Public Use
  Company Number: PH-TYCO HEALTHCARE/MALLINCKRODT-T201001157

PATIENT
  Age: 79 Year
  Sex: Male

DRUGS (2)
  1. OPTIRAY 350 [Suspect]
     Indication: COMPUTERISED TOMOGRAM
     Dosage: 1 ML, SINGLE
     Route: 042
     Dates: start: 20100222, end: 20100222
  2. SODIUM CHLORIDE [Suspect]
     Indication: COMPUTERISED TOMOGRAM
     Dosage: 9 ML, SINGLE
     Route: 042
     Dates: start: 20100222, end: 20100222

REACTIONS (6)
  - CARDIO-RESPIRATORY ARREST [None]
  - COUGH [None]
  - DIZZINESS [None]
  - OXYGEN SATURATION DECREASED [None]
  - PULSE ABSENT [None]
  - UNRESPONSIVE TO STIMULI [None]
